FAERS Safety Report 7428811-9 (Version None)
Quarter: 2011Q2

REPORT INFORMATION
  Report Type: 
  Country: None (occurrence: None)
  Receive Date: 20110421
  Receipt Date: 20110419
  Transmission Date: 20111010
  Serious: Yes (Hospitalization)
  Sender: FDA-Public Use
  Company Number: US-BRISTOL-MYERS SQUIBB COMPANY-15659741

PATIENT
  Age: 62 Year
  Sex: Male
  Weight: 67 kg

DRUGS (19)
  1. MEGACE [Concomitant]
     Dosage: STRENGTH=400 MG/10ML
     Route: 048
  2. VITAMIN B-12 [Concomitant]
     Route: 048
  3. DEXAMETHASONE [Concomitant]
     Dosage: 2* DAY BEFORE, OF AND AFTER ALIMTA
     Route: 048
  4. HYDREA [Concomitant]
     Dosage: 500 MG CAPS,2CAPS SU, MO, WE, FRI.1 CAPS TUE AND THURS
     Route: 048
  5. MIRTAZAPINE [Concomitant]
     Dosage: AT BED TIME
     Route: 048
  6. ERBITUX [Suspect]
     Indication: NON-SMALL CELL LUNG CANCER
     Dosage: MOST RECENT DOSE ON 25MAR2011,NO OF INFUSION=4
     Route: 042
     Dates: start: 20110228, end: 20110325
  7. ENULOSE [Concomitant]
     Dosage: 10GRA/15 ML TAKE 30 CC EVERY 2 HR AS NEEDDED
     Route: 048
  8. LEXAPRO [Concomitant]
     Route: 048
  9. ZOCOR [Concomitant]
     Route: 048
  10. PEMETREXED [Suspect]
     Indication: NON-SMALL CELL LUNG CANCER
     Dosage: MOST RECENT DOSE ON 25MAR2011,NO OF INFUSION =2
     Route: 042
     Dates: start: 20110228, end: 20110325
  11. ASPIRIN [Concomitant]
     Route: 048
  12. FOLIC ACID [Concomitant]
     Route: 048
  13. PROCHLORPERAZINE MALEATE [Concomitant]
     Dosage: EVERY 4-6 HR
     Route: 048
  14. OMEPRAZOLE [Concomitant]
     Route: 048
  15. VITAMIN B-12 [Concomitant]
     Route: 048
  16. CISPLATIN [Suspect]
     Indication: NON-SMALL CELL LUNG CANCER
     Dosage: MOST RECENT DOSE ON 25MAR2011.
     Route: 042
     Dates: start: 20110228, end: 20110325
  17. MAGNESIUM OXIDE [Concomitant]
     Dosage: 500MG
     Route: 048
  18. OXYGEN [Concomitant]
     Indication: DYSPNOEA
     Route: 055
  19. NEULASTA [Concomitant]

REACTIONS (3)
  - HYPOTENSION [None]
  - LEUKOCYTOSIS [None]
  - DIARRHOEA [None]
